FAERS Safety Report 9523452 (Version 2)
Quarter: 2013Q4

REPORT INFORMATION
  Report Type: Spontaneous
  Country: US (occurrence: US)
  Receive Date: 20130913
  Receipt Date: 20131030
  Transmission Date: 20140711
  Serious: Yes (Hospitalization)
  Sender: FDA-Public Use
  Company Number: US-MERCK-1309USA004590

PATIENT
  Sex: Female

DRUGS (2)
  1. JANUVIA [Suspect]
     Indication: HORMONE REPLACEMENT THERAPY
     Route: 048
  2. ENJUVIA [Suspect]
     Dosage: UNK

REACTIONS (4)
  - Adverse event [Unknown]
  - Product name confusion [Unknown]
  - Intercepted medication error [Unknown]
  - No adverse event [Unknown]
